FAERS Safety Report 5959338-9 (Version None)
Quarter: 2008Q4

REPORT INFORMATION
  Report Type: 
  Country: None (occurrence: None)
  Receive Date: 20081119
  Receipt Date: 20081119
  Transmission Date: 20090506
  Serious: Yes (Other)
  Sender: FDA-Public Use
  Company Number: None

PATIENT
  Sex: Female
  Weight: 126.1 kg

DRUGS (12)
  1. HUMIRA [Suspect]
     Indication: RHEUMATOID ARTHRITIS
     Dosage: 40MG EVERY 2 WEEKS SQ
     Route: 058
     Dates: start: 20070821, end: 20080701
  2. HUMIRA [Suspect]
     Indication: RHEUMATOID ARTHRITIS
     Dosage: 40MG EVERY 2 WEEKS SQ
     Route: 058
     Dates: start: 20081101
  3. PROZAC [Concomitant]
  4. DARVOCET [Concomitant]
  5. VITAMIN B6 [Concomitant]
  6. ATACAND [Concomitant]
  7. CLONAZEPAM [Concomitant]
  8. ATENOLOL [Concomitant]
  9. LASIX [Concomitant]
  10. FEXOFENADINE [Concomitant]
  11. CLONIDINE [Concomitant]
  12. AMLODIPINE [Concomitant]

REACTIONS (1)
  - TUBERCULIN TEST POSITIVE [None]
